FAERS Safety Report 6795784-1 (Version None)
Quarter: 2010Q2

REPORT INFORMATION
  Report Type: 
  Country: None (occurrence: None)
  Receive Date: 20100625
  Receipt Date: 20100623
  Transmission Date: 20101027
  Serious: Yes (Other)
  Sender: FDA-Public Use
  Company Number: GXKR2010DE06970

PATIENT
  Sex: Female

DRUGS (1)
  1. AMLODIPINE [Suspect]
     Dosage: 10 MG, UNK
     Route: 048

REACTIONS (3)
  - DRY MOUTH [None]
  - GINGIVAL HYPERPLASIA [None]
  - INFLAMMATION [None]
